FAERS Safety Report 6429779-4 (Version None)
Quarter: 2009Q4

REPORT INFORMATION
  Report Type: 
  Country: None (occurrence: None)
  Receive Date: 20091104
  Receipt Date: 20091104
  Transmission Date: 20100525
  Serious: No
  Sender: FDA-Public Use
  Company Number: None

PATIENT

DRUGS (2)
  1. LEUCOVORIN CALCIUM [Suspect]
  2. FLUOROURACIL [Suspect]

REACTIONS (35)
  - ABDOMINAL PAIN [None]
  - AGEUSIA [None]
  - ALOPECIA [None]
  - AMNESIA [None]
  - ASTHENIA [None]
  - BALANCE DISORDER [None]
  - CONSTIPATION [None]
  - DEAFNESS UNILATERAL [None]
  - DECREASED APPETITE [None]
  - DEHYDRATION [None]
  - DIARRHOEA [None]
  - DYSPHAGIA [None]
  - DYSPHONIA [None]
  - EYE IRRITATION [None]
  - FATIGUE [None]
  - GINGIVAL SWELLING [None]
  - GINGIVITIS [None]
  - HYPERAESTHESIA [None]
  - HYPERSENSITIVITY [None]
  - HYPOAESTHESIA [None]
  - JOINT STIFFNESS [None]
  - LACRIMATION INCREASED [None]
  - NASOPHARYNGITIS [None]
  - NAUSEA [None]
  - OEDEMA MOUTH [None]
  - OEDEMA PERIPHERAL [None]
  - OROPHARYNGEAL PAIN [None]
  - PAIN [None]
  - PARAESTHESIA [None]
  - PRURITUS [None]
  - RHINORRHOEA [None]
  - STOMATITIS [None]
  - VISION BLURRED [None]
  - VOMITING [None]
  - WEIGHT DECREASED [None]
